FAERS Safety Report 16169823 (Version 2)
Quarter: 2019Q2

REPORT INFORMATION
  Report Type: Spontaneous
  Country: US (occurrence: US)
  Receive Date: 20190408
  Receipt Date: 20190502
  Transmission Date: 20190711
  Serious: Yes (Hospitalization)
  Sender: FDA-Public Use
  Company Number: US-VERTEX PHARMACEUTICALS-2019-002932

PATIENT
  Sex: Female
  Weight: 27 kg

DRUGS (4)
  1. ORKAMBI [Suspect]
     Active Substance: IVACAFTOR\LUMACAFTOR
     Indication: CYSTIC FIBROSIS
     Dosage: 2 DOSAGE FORM (100/125 MG EACH), BID
     Route: 048
  2. PULMOZYME [Concomitant]
     Active Substance: DORNASE ALFA
  3. BETHKIS [Concomitant]
     Active Substance: TOBRAMYCIN
  4. CAYSTON [Concomitant]
     Active Substance: AZTREONAM

REACTIONS (2)
  - Sinus operation [Unknown]
  - Lung infection [Unknown]

NARRATIVE: CASE EVENT DATE: 2019
